FAERS Safety Report 19952202 (Version 2)
Quarter: 2024Q3

REPORT INFORMATION
  Report Type: Spontaneous
  Country: US (occurrence: US)
  Receive Date: 20211014
  Receipt Date: 20240910
  Transmission Date: 20241017
  Serious: No
  Sender: VIIV
  Company Number: US-VIIV HEALTHCARE LIMITED-US2021209363

PATIENT
  Age: 60 Year
  Sex: Female

DRUGS (1)
  1. JULUCA [Suspect]
     Active Substance: DOLUTEGRAVIR SODIUM\RILPIVIRINE HYDROCHLORIDE
     Indication: HIV infection
     Dosage: 1 DF, QD (50MG/25MG TABLET ONCE DAILY)
     Route: 048
     Dates: end: 20211005

REACTIONS (1)
  - Product dose omission issue [Not Recovered/Not Resolved]

NARRATIVE: CASE EVENT DATE: 20211005
